FAERS Safety Report 15681862 (Version 6)
Quarter: 2019Q2

REPORT INFORMATION
  Report Type: Report from Study
  Country: US (occurrence: US)
  Receive Date: 20181203
  Receipt Date: 20190614
  Transmission Date: 20190711
  Serious: Yes (Hospitalization)
  Sender: FDA-Public Use
  Company Number: US-TAKEDA-2018TUS020314

PATIENT
  Sex: Female

DRUGS (2)
  1. PONATINIB [Suspect]
     Active Substance: PONATINIB
     Indication: ACUTE LYMPHOCYTIC LEUKAEMIA
     Dosage: 30 MILLIGRAM, QD
     Route: 048
  2. PONATINIB [Suspect]
     Active Substance: PONATINIB
     Indication: ACUTE LYMPHOCYTIC LEUKAEMIA RECURRENT
     Dosage: 15 MILLIGRAM, QD
     Route: 048
     Dates: start: 20171214

REACTIONS (9)
  - Pneumonia [Recovered/Resolved]
  - Neoplasm progression [Unknown]
  - Kidney infection [Recovered/Resolved]
  - Cystitis [Recovered/Resolved]
  - White blood cell count decreased [Recovered/Resolved]
  - Rash [Unknown]
  - Urinary tract infection [Unknown]
  - Platelet count decreased [Unknown]
  - Diarrhoea [Unknown]
